FAERS Safety Report 4279539-8 (Version None)
Quarter: 2004Q1

REPORT INFORMATION
  Report Type: 
  Country: None (occurrence: None)
  Receive Date: 20040123
  Receipt Date: 20040112
  Transmission Date: 20041129
  Serious: Yes (Hospitalization)
  Sender: FDA-Public Use
  Company Number: US041751

PATIENT
  Age: 17 Year
  Sex: Female
  Weight: 97.6 kg

DRUGS (1)
  1. ENBREL [Suspect]
     Indication: JUVENILE ARTHRITIS
     Dosage: 25 MG WEEKLY TO TWICE WEEKLY
     Dates: start: 20010101, end: 20031215

REACTIONS (4)
  - IMPLANT SITE REACTION [None]
  - MECHANICAL COMPLICATION OF IMPLANT [None]
  - MEDICATION ERROR [None]
  - SURGICAL PROCEDURE REPEATED [None]
